FAERS Safety Report 11516940 (Version 2)
Quarter: 2015Q4

REPORT INFORMATION
  Report Type: Spontaneous
  Country: US (occurrence: US)
  Receive Date: 20150917
  Receipt Date: 20151030
  Transmission Date: 20160304
  Serious: No
  Sender: FDA-Public Use
  Company Number: US-ASTRAZENECA-2015SE89153

PATIENT
  Sex: Female

DRUGS (5)
  1. LIPITOR [Suspect]
     Active Substance: ATORVASTATIN CALCIUM
  2. NORVASC [Suspect]
     Active Substance: AMLODIPINE BESYLATE
     Indication: BLOOD PRESSURE ABNORMAL
  3. ANASTROZOLE. [Suspect]
     Active Substance: ANASTROZOLE
     Route: 048
  4. IBRANCE [Suspect]
     Active Substance: PALBOCICLIB
     Indication: METASTATIC NEOPLASM
     Route: 048
     Dates: start: 20150611, end: 20150731
  5. FULVESTRANT [Suspect]
     Active Substance: FULVESTRANT
     Indication: METASTATIC NEOPLASM
     Route: 030

REACTIONS (3)
  - Pyrexia [Recovered/Resolved]
  - Thrombocytopenia [Recovered/Resolved]
  - Liver function test abnormal [Recovered/Resolved]
